FAERS Safety Report 13350156 (Version 1)
Quarter: 2017Q1

REPORT INFORMATION
  Report Type: Spontaneous
  Country: US (occurrence: US)
  Receive Date: 20170320
  Receipt Date: 20170320
  Transmission Date: 20170429
  Serious: Yes (Hospitalization)
  Sender: FDA-Public Use
  Company Number: US-TARO PHARMACEUTICALS USA.,INC-2017SUN00088

PATIENT
  Age: 23 Year
  Sex: Female

DRUGS (6)
  1. KEPPRA [Concomitant]
     Active Substance: LEVETIRACETAM
     Indication: SEIZURE
  2. CAFFEINE. [Concomitant]
     Active Substance: CAFFEINE
     Indication: PRODUCT USED FOR UNKNOWN INDICATION
     Dosage: UNK
  3. KEPPRA [Concomitant]
     Active Substance: LEVETIRACETAM
     Indication: PARAESTHESIA
     Dosage: UNK
  4. LOVENOX [Suspect]
     Active Substance: ENOXAPARIN SODIUM
     Indication: CEREBRAL VENOUS THROMBOSIS
     Dosage: UNK
     Route: 030
  5. UNSPECIFIED ANALGESICS [Concomitant]
     Active Substance: UNSPECIFIED INGREDIENT
     Route: 065
  6. WARFARIN [Suspect]
     Active Substance: WARFARIN
     Indication: CEREBRAL VENOUS THROMBOSIS
     Dosage: UNK
     Route: 048

REACTIONS (3)
  - International normalised ratio increased [Recovered/Resolved]
  - Subdural haematoma [Recovered/Resolved]
  - Brain herniation [Recovering/Resolving]
